FAERS Safety Report 6386362-7 (Version None)
Quarter: 2009Q4

REPORT INFORMATION
  Report Type: 
  Country: None (occurrence: None)
  Receive Date: 20091002
  Receipt Date: 20090923
  Transmission Date: 20100525
  Serious: Yes (Hospitalization, Other)
  Sender: FDA-Public Use
  Company Number: US-AMGEN-QUU366000

PATIENT
  Sex: Male

DRUGS (5)
  1. ENBREL [Suspect]
     Indication: PSORIATIC ARTHROPATHY
     Dates: start: 20080401, end: 20090918
  2. ENBREL [Suspect]
     Indication: PSORIASIS
  3. MELOXICAM [Concomitant]
  4. TRICOR [Concomitant]
  5. PRAVACHOL [Concomitant]

REACTIONS (2)
  - BLADDER CANCER [None]
  - BLADDER NEOPLASM [None]
